FAERS Safety Report 5775523-3 (Version None)
Quarter: 2008Q2

REPORT INFORMATION
  Report Type: 
  Country: None (occurrence: None)
  Receive Date: 20080612
  Receipt Date: 20080602
  Transmission Date: 20081010
  Serious: Yes (Life-Threatening, Hospitalization, Disabling)
  Sender: FDA-Public Use
  Company Number: GXKR2008GB05018

PATIENT
  Age: 55 Year
  Sex: Male
  Weight: 70 kg

DRUGS (5)
  1. ACETYLSALICYLIC ACID SRT [Suspect]
     Indication: ANGINA PECTORIS
     Dosage: ORAL
     Route: 048
     Dates: start: 20080512, end: 20080513
  2. CLOPIDOGREL [Suspect]
     Indication: ANGINA PECTORIS
     Dosage: 600 MG, ORAL
     Route: 048
     Dates: start: 20080512
  3. HEPARIN [Suspect]
     Indication: ANGIOGRAM
     Dosage: 5000 DF, INTRA-ARTERIAL
     Route: 013
  4. MIGRIL (CAFFEINE, CYCLIZINE HYDROCHLORIDE, ERGOTAMINE TARTRATE) [Concomitant]
  5. SIMVASTATIN [Concomitant]

REACTIONS (6)
  - ASTHENIA [None]
  - DYSPHASIA [None]
  - HEADACHE [None]
  - HEMIPARESIS [None]
  - SUBDURAL HAEMATOMA [None]
  - VOMITING [None]
